FAERS Safety Report 22366053 (Version 1)
Quarter: 2023Q2

REPORT INFORMATION
  Report Type: Report from Study
  Country: CN (occurrence: CN)
  Receive Date: 20230525
  Receipt Date: 20230525
  Transmission Date: 20230721
  Serious: Yes (Other)
  Sender: FDA-Public Use
  Company Number: CN-PFIZER INC-PV202300089770

PATIENT

DRUGS (2)
  1. PACLITAXEL [Suspect]
     Active Substance: PACLITAXEL
     Indication: Oesophageal carcinoma
     Dosage: 135 MG/M2, CYCLIC (ON DAY 1,ONCE EVERY THREE WEEKS FOR TWO CYCLES)
  2. CISPLATIN [Suspect]
     Active Substance: CISPLATIN
     Indication: Oesophageal carcinoma
     Dosage: 25 MG/M2, CYCLIC (IN DAYS 1-3. ONCE EVERY THREE WEEKS FOR TWO CYCLES)

REACTIONS (1)
  - Neurotoxicity [Unknown]
